FAERS Safety Report 7735107-4 (Version None)
Quarter: 2011Q3

REPORT INFORMATION
  Report Type: 
  Country: None (occurrence: None)
  Receive Date: 20110817
  Receipt Date: 20100611
  Transmission Date: 20111222
  Serious: Yes (Hospitalization)
  Sender: FDA-Public Use
  Company Number: 20052449

PATIENT
  Age: 30 Year
  Sex: Female

DRUGS (4)
  1. DROPERIDOL [Concomitant]
  2. LIORESAL [Suspect]
     Indication: MUSCLE SPASTICITY
     Dosage: 110 MCG, DAILY, INTRATHECAL
     Route: 037
  3. BUPIVICAINE [Concomitant]
  4. HYDROMORPHINE [Concomitant]

REACTIONS (1)
  - MENINGITIS [None]
